FAERS Safety Report 17869603 (Version 1)
Quarter: 2020Q2

REPORT INFORMATION
  Report Type: Spontaneous
  Country: US (occurrence: US)
  Receive Date: 20200608
  Receipt Date: 20200608
  Transmission Date: 20200714
  Serious: No
  Sender: FDA-Public Use
  Company Number: US-BIO PRODUCTS LABORATORY LTD-2085533

PATIENT
  Age: 59 Year
  Sex: Male

DRUGS (4)
  1. PLASMA EXCHANGE [Concomitant]
     Active Substance: ALBUMIN HUMAN
  2. SYMMETREL [Suspect]
     Active Substance: AMANTADINE HYDROCHLORIDE
  3. HIGH-DOSE INTRAVENOUS STEROIDS [Concomitant]
  4. GAMMAPLEX [Suspect]
     Active Substance: HUMAN IMMUNOGLOBULIN G
     Indication: ACUTE DISSEMINATED ENCEPHALOMYELITIS
     Route: 042

REACTIONS (2)
  - Keratitis [Recovered/Resolved]
  - Off label use [Recovered/Resolved]
